FAERS Safety Report 10997137 (Version 1)
Quarter: 2015Q2

REPORT INFORMATION
  Report Type: Spontaneous
  Country: GB (occurrence: GB)
  Receive Date: 20150408
  Receipt Date: 20150408
  Transmission Date: 20150821
  Serious: Yes (Disabling)
  Sender: FDA-Public Use
  Company Number: GB-TEVA-553153ACC

PATIENT
  Age: 71 Year
  Sex: Female
  Weight: 57 kg

DRUGS (2)
  1. TRAVOPROST [Concomitant]
     Active Substance: TRAVOPROST
     Dosage: 1 GTT DAILY; TO LEFT EYE AT NIGHT
     Route: 061
     Dates: start: 20141110
  2. SIMVASTATIN. [Suspect]
     Active Substance: SIMVASTATIN
     Dates: start: 20150112

REACTIONS (3)
  - Pain [Recovered/Resolved]
  - Myalgia [Recovered/Resolved]
  - Gastrointestinal disorder [Unknown]

NARRATIVE: CASE EVENT DATE: 20150112
